FAERS Safety Report 19771159 (Version 1)
Quarter: 2021Q3

REPORT INFORMATION
  Report Type: Spontaneous
  Country: US (occurrence: US)
  Receive Date: 20210901
  Receipt Date: 20210901
  Transmission Date: 20211014
  Serious: Yes (Other)
  Sender: FDA-Public Use
  Company Number: US-SA-2021SA287783

PATIENT

DRUGS (1)
  1. DUPIXENT [Suspect]
     Active Substance: DUPILUMAB
     Dosage: UNK

REACTIONS (5)
  - Autoimmune disorder [Unknown]
  - Arthralgia [Unknown]
  - Muscular weakness [Unknown]
  - Systemic lupus erythematosus [Unknown]
  - Neutralising antibodies [Unknown]
